FAERS Safety Report 4625039-2 (Version None)
Quarter: 2005Q2

REPORT INFORMATION
  Report Type: 
  Country: None (occurrence: None)
  Receive Date: 20050401
  Receipt Date: 20050322
  Transmission Date: 20051028
  Serious: Yes (Hospitalization, Other)
  Sender: FDA-Public Use
  Company Number: GB-BRISTOL-MYERS SQUIBB COMPANY-12915153

PATIENT
  Age: 59 Year
  Sex: Male

DRUGS (5)
  1. METFORMIN HCL [Suspect]
     Indication: DIABETES MELLITUS NON-INSULIN-DEPENDENT
     Route: 048
     Dates: end: 20050307
  2. INDOMETHACIN [Concomitant]
     Indication: PAIN
     Dates: end: 20050307
  3. FLUCLOXACILLIN [Concomitant]
     Indication: LOCALISED INFECTION
     Dates: start: 20050305, end: 20050307
  4. BENZYLPENICILLIN [Concomitant]
     Indication: LOCALISED INFECTION
     Dates: start: 20050305, end: 20050307
  5. GLICLAZIDE [Concomitant]
     Dates: end: 20050307

REACTIONS (6)
  - AMPUTATION [None]
  - BODY TEMPERATURE DECREASED [None]
  - DYSARTHRIA [None]
  - METABOLIC ACIDOSIS [None]
  - POSTOPERATIVE INFECTION [None]
  - RENAL FAILURE ACUTE [None]
